FAERS Safety Report 14912023 (Version 1)
Quarter: 2018Q2

REPORT INFORMATION
  Report Type: Spontaneous
  Country: US (occurrence: US)
  Receive Date: 20180518
  Receipt Date: 20180518
  Transmission Date: 20180711
  Serious: Yes (Other)
  Sender: FDA-Public Use
  Company Number: US-ROCHE-2123689

PATIENT
  Sex: Male

DRUGS (10)
  1. GABAPENTIN. [Concomitant]
     Active Substance: GABAPENTIN
  2. ELIQUIS [Concomitant]
     Active Substance: APIXABAN
  3. PAXIL [Concomitant]
     Active Substance: PAROXETINE HYDROCHLORIDE
  4. ESBRIET [Suspect]
     Active Substance: PIRFENIDONE
     Indication: IDIOPATHIC PULMONARY FIBROSIS
     Dosage: ONGOING:YES
     Route: 048
     Dates: start: 20160405
  5. CIMZIA [Concomitant]
     Active Substance: CERTOLIZUMAB PEGOL
  6. FLOMAX [Concomitant]
     Active Substance: TAMSULOSIN HYDROCHLORIDE
  7. PRAVASTATIN. [Concomitant]
     Active Substance: PRAVASTATIN
  8. BABY ASPIRIN [Concomitant]
     Active Substance: ASPIRIN
  9. COREG [Concomitant]
     Active Substance: CARVEDILOL
  10. FUROSEMIDE. [Concomitant]
     Active Substance: FUROSEMIDE

REACTIONS (1)
  - Pleural effusion [Unknown]
